FAERS Safety Report 12556219 (Version 3)
Quarter: 2016Q3

REPORT INFORMATION
  Report Type: Spontaneous
  Country: BR (occurrence: BR)
  Receive Date: 20160714
  Receipt Date: 20160727
  Transmission Date: 20161109
  Serious: Yes (Hospitalization, Other)
  Sender: FDA-Public Use
  Company Number: BR-PFIZER INC-2016331693

PATIENT
  Age: 85 Year
  Sex: Female
  Weight: 68 kg

DRUGS (5)
  1. XALATAN [Suspect]
     Active Substance: LATANOPROST
     Indication: GLAUCOMA
     Dosage: 3 UG, 1 DROP IN THE RIGHT EYE AT NIGHT
     Route: 047
     Dates: start: 2001
  2. XALATAN [Suspect]
     Active Substance: LATANOPROST
     Dosage: 1 DROP (1.5 MCG) IN THE LEFT EYE
     Route: 047
  3. XALATAN [Suspect]
     Active Substance: LATANOPROST
     Dosage: 1 DROP (1.5 MCG) IN THE LEFT EYE
     Route: 047
  4. COSOPT [Concomitant]
     Active Substance: DORZOLAMIDE HYDROCHLORIDE\TIMOLOL MALEATE
     Indication: INTRAOCULAR PRESSURE INCREASED
     Dosage: UNK
     Dates: start: 2001
  5. QUEROPAX [Concomitant]
     Active Substance: QUETIAPINE FUMARATE
     Indication: DELIRIUM
     Dosage: 1 TABLET 3X/WEEK
     Route: 048

REACTIONS (10)
  - Hyperhidrosis [Recovered/Resolved]
  - Feeling cold [Recovered/Resolved]
  - Incorrect product storage [Recovered/Resolved]
  - Blindness [Unknown]
  - Product quality issue [Unknown]
  - Pallor [Recovered/Resolved]
  - Gastritis [Unknown]
  - Poor quality drug administered [Recovered/Resolved]
  - Dementia Alzheimer^s type [Recovered/Resolved]
  - Asthenia [Recovered/Resolved]

NARRATIVE: CASE EVENT DATE: 2010
